FAERS Safety Report 9369798 (Version 1)
Quarter: 2013Q2

REPORT INFORMATION
  Report Type: Spontaneous
  Country: FR (occurrence: FR)
  Receive Date: 20130626
  Receipt Date: 20130626
  Transmission Date: 20140414
  Serious: Yes (Other)
  Sender: FDA-Public Use
  Company Number: FR-JNJFOC-20130612831

PATIENT
  Sex: 0

DRUGS (4)
  1. DOXORUBICIN HYDROCHLORIDE [Suspect]
     Indication: BREAST CANCER METASTATIC
     Dosage: 35 MG/M2; BEACUSE OF TOXICITY PROTOCOL AMENDED TO 30 MG/M2
     Route: 042
  2. TAXOTERE [Suspect]
     Indication: BREAST CANCER METASTATIC
     Dosage: 40 MG/M2 IN 1 H EVERY 2 WEEKS (DAYS 1 AND 15). PROTOCOL AMENDED TO 75 MG/M2 ON DAY 2 EVERY 3 WKS
     Route: 042
  3. CORTICOSTEROIDS [Concomitant]
     Indication: PREMEDICATION
     Route: 065
  4. PYRIDOXIN [Concomitant]
     Indication: PROPHYLAXIS
     Route: 065

REACTIONS (16)
  - Disease progression [Unknown]
  - Stomatitis [Unknown]
  - Palmar-plantar erythrodysaesthesia syndrome [Unknown]
  - Neutropenia [Unknown]
  - Febrile neutropenia [Unknown]
  - Infection [Unknown]
  - Anaemia [Unknown]
  - Thrombocytopenia [Unknown]
  - Nausea [Unknown]
  - Vomiting [Unknown]
  - Diarrhoea [Unknown]
  - Asthenia [Unknown]
  - Neurotoxicity [Unknown]
  - Oedema [Unknown]
  - Constipation [Unknown]
  - Ejection fraction decreased [Unknown]
